FAERS Safety Report 6688142-1 (Version None)
Quarter: 2010Q2

REPORT INFORMATION
  Report Type: 
  Country: None (occurrence: None)
  Receive Date: 20100420
  Receipt Date: 20100409
  Transmission Date: 20101027
  Serious: Yes (Hospitalization)
  Sender: FDA-Public Use
  Company Number: FR-PFIZER INC-2009273322

PATIENT
  Age: 72 Year
  Sex: Male

DRUGS (9)
  1. AMLOR [Suspect]
     Indication: HYPERTENSION
     Dosage: 10 MG, 1X/DAY
     Route: 048
  2. PRAZOSIN HCL [Interacting]
     Indication: HYPERTENSION
     Dosage: 5 MG, UNK
  3. BISOPROLOL FUMARATE [Interacting]
     Indication: HYPERTENSION
     Dosage: 10 MG, 1X/DAY
     Route: 048
  4. LASIX [Interacting]
     Dosage: 40 MG, 1X/DAY
     Route: 048
  5. HYPERIUM [Interacting]
     Dosage: 1 MG, UNK
     Route: 048
  6. KARDEGIC [Concomitant]
  7. PRAVASTATIN [Concomitant]
  8. KAYEXALATE [Concomitant]
  9. ARANESP [Concomitant]

REACTIONS (3)
  - DRUG INTERACTION [None]
  - FALL [None]
  - ORTHOSTATIC HYPOTENSION [None]
